FAERS Safety Report 7017473-0 (Version None)
Quarter: 2010Q3

REPORT INFORMATION
  Report Type: 
  Country: None (occurrence: None)
  Receive Date: 20100928
  Receipt Date: 20100920
  Transmission Date: 20110219
  Serious: Yes (Other)
  Sender: FDA-Public Use
  Company Number: GB-PFIZER INC-2010106919

PATIENT
  Age: 44 Year
  Sex: Male
  Weight: 178.2 kg

DRUGS (1)
  1. VIAGRA [Suspect]
     Indication: ERECTILE DYSFUNCTION
     Dosage: 400 MG, UNK
     Route: 048
     Dates: start: 20100825

REACTIONS (5)
  - CYANOPSIA [None]
  - FEELING HOT [None]
  - HYPERTENSION [None]
  - OVERDOSE [None]
  - VISION BLURRED [None]
